FAERS Safety Report 16992591 (Version 3)
Quarter: 2021Q1

REPORT INFORMATION
  Report Type: Spontaneous
  Country: CA (occurrence: CA)
  Receive Date: 20191105
  Receipt Date: 20210226
  Transmission Date: 20210419
  Serious: Yes (Other)
  Sender: FDA-Public Use
  Company Number: CA-TEVA-2019-CA-1130840

PATIENT
  Age: 6 Year
  Sex: Female

DRUGS (8)
  1. GANCICLOVIR. [Suspect]
     Active Substance: GANCICLOVIR
     Dosage: 15 MG/KG DAILY;
     Route: 065
  2. FOSCAVIR [Concomitant]
     Active Substance: FOSCARNET SODIUM
  3. IMMUNE GLOBULIN [IMMUNOGLOBULIN CYTOMEGALOVIRUS] [Suspect]
     Active Substance: HUMAN CYTOMEGALOVIRUS IMMUNE GLOBULIN
     Indication: CYTOMEGALOVIRUS INFECTION
     Route: 065
  4. MYCOPHENOLATE MOFETIL. [Suspect]
     Active Substance: MYCOPHENOLATE MOFETIL
     Indication: IMMUNOSUPPRESSION
     Route: 065
  5. TACROLIMUS. [Suspect]
     Active Substance: TACROLIMUS
     Indication: IMMUNOSUPPRESSION
     Route: 065
  6. FOSCARNET SODIUM HYDRATE [Concomitant]
     Active Substance: FOSCARNET SODIUM
  7. GANCICLOVIR. [Suspect]
     Active Substance: GANCICLOVIR
     Indication: CYTOMEGALOVIRUS INFECTION
     Dosage: 20 MG/KG DAILY;
     Route: 065
  8. PREDNISONE. [Suspect]
     Active Substance: PREDNISONE
     Indication: IMMUNOSUPPRESSION
     Route: 065

REACTIONS (4)
  - Product use issue [Unknown]
  - Gastroenteritis [Unknown]
  - Drug resistance [Unknown]
  - Cytomegalovirus infection [Unknown]
